FAERS Safety Report 15720378 (Version 2)
Quarter: 2019Q1

REPORT INFORMATION
  Report Type: Report from Study
  Country: US (occurrence: US)
  Receive Date: 20181213
  Receipt Date: 20190108
  Transmission Date: 20190417
  Serious: Yes (Hospitalization)
  Sender: FDA-Public Use
  Company Number: US-GILEAD-2018-0379725

PATIENT
  Age: 61 Year
  Sex: Male
  Weight: 85 kg

DRUGS (24)
  1. NICODERM CQ [Concomitant]
     Active Substance: NICOTINE
  2. LEVOFLOXACIN. [Concomitant]
     Active Substance: LEVOFLOXACIN
  3. SPIRONOLACTONE. [Concomitant]
     Active Substance: SPIRONOLACTONE
  4. SOFOSBUVIR W/VELPATASVIR/VOXILAPREVIR [Suspect]
     Active Substance: SOFOSBUVIR\VELPATASVIR\VOXILAPREVIR
     Dosage: 1 DF, QD
     Route: 048
     Dates: start: 20180508, end: 20180513
  5. ADVAIR HFA [Concomitant]
     Active Substance: FLUTICASONE PROPIONATE\SALMETEROL XINAFOATE
  6. ACETAMINOPHEN. [Concomitant]
     Active Substance: ACETAMINOPHEN
  7. ASPIRIN [ACETYLSALICYLIC ACID] [Concomitant]
     Active Substance: ASPIRIN
  8. COREG [Concomitant]
     Active Substance: CARVEDILOL
  9. ALBUTEROL [SALBUTAMOL] [Concomitant]
     Active Substance: ALBUTEROL
  10. FOLIC ACID. [Concomitant]
     Active Substance: FOLIC ACID
  11. SOFOSBUVIR W/VELPATASVIR/VOXILAPREVIR [Suspect]
     Active Substance: SOFOSBUVIR\VELPATASVIR\VOXILAPREVIR
     Dosage: 1 DF, QD
     Route: 048
     Dates: start: 20180518, end: 20180726
  12. TOPROL XL [Concomitant]
     Active Substance: METOPROLOL SUCCINATE
  13. VITAMIN C [Concomitant]
     Active Substance: ASCORBIC ACID
  14. COLACE [Concomitant]
     Active Substance: DOCUSATE SODIUM
  15. OXYCODONE [Concomitant]
     Active Substance: OXYCODONE
  16. THIAMINE. [Concomitant]
     Active Substance: THIAMINE
  17. PRILOSEC [Concomitant]
     Active Substance: OMEPRAZOLE MAGNESIUM
  18. BUMEX [Concomitant]
     Active Substance: BUMETANIDE
  19. LISINOPRIL. [Concomitant]
     Active Substance: LISINOPRIL
  20. SOFOSBUVIR W/VELPATASVIR/VOXILAPREVIR [Suspect]
     Active Substance: SOFOSBUVIR\VELPATASVIR\VOXILAPREVIR
     Indication: HEPATITIS C
     Dosage: 1 DF, QD
     Route: 048
     Dates: start: 20180425, end: 20180503
  21. ATORVASTATIN [Concomitant]
     Active Substance: ATORVASTATIN
  22. TYLENOL [Concomitant]
     Active Substance: ACETAMINOPHEN
  23. IRON SULFATE [Concomitant]
     Active Substance: FERROUS SULFATE ANHYDROUS
  24. BUPRENORPHINE HCL [Concomitant]
     Active Substance: BUPRENORPHINE HYDROCHLORIDE

REACTIONS (3)
  - Colitis [Unknown]
  - Chest pain [Recovered/Resolved]
  - Abdominal pain [Unknown]

NARRATIVE: CASE EVENT DATE: 20180504
